FAERS Safety Report 5750321-5 (Version None)
Quarter: 2008Q2

REPORT INFORMATION
  Report Type: 
  Country: None (occurrence: None)
  Receive Date: 20080521
  Receipt Date: 20080521
  Transmission Date: 20081010
  Serious: Yes (Hospitalization)
  Sender: FDA-Public Use
  Company Number: None

PATIENT
  Age: 80 Year
  Sex: Male
  Weight: 80.1 kg

DRUGS (1)
  1. THALIDOMIDE [Suspect]
     Indication: MULTIPLE MYELOMA
     Dosage: 100 MG HS PO
     Route: 048
     Dates: start: 20080207, end: 20080320

REACTIONS (5)
  - DIZZINESS [None]
  - EXTRASYSTOLES [None]
  - HYPOTENSION [None]
  - SINUS BRADYCARDIA [None]
  - SINUS TACHYCARDIA [None]
